FAERS Safety Report 8077470-3 (Version None)
Quarter: 2012Q1

REPORT INFORMATION
  Report Type: 
  Country: None (occurrence: None)
  Receive Date: 20120127
  Receipt Date: 20101129
  Transmission Date: 20120608
  Serious: No
  Sender: FDA-Public Use
  Company Number: US-ABBOTT-10P-163-0688035-00

PATIENT
  Sex: Female
  Weight: 67.192 kg

DRUGS (6)
  1. PREDNISONE TAB [Concomitant]
     Indication: RHEUMATOID ARTHRITIS
  2. ZOLOFT [Concomitant]
     Indication: NERVOUSNESS
  3. ARAVA [Concomitant]
     Indication: RHEUMATOID ARTHRITIS
  4. HUMIRA [Suspect]
  5. HUMIRA [Suspect]
     Indication: RHEUMATOID ARTHRITIS
     Dates: end: 20091101
  6. LOTREL [Concomitant]
     Indication: HYPERTENSION

REACTIONS (3)
  - INJURY [None]
  - JOINT DISLOCATION [None]
  - DERMATITIS CONTACT [None]
